FAERS Safety Report 4720812-4 (Version None)
Quarter: 2005Q3

REPORT INFORMATION
  Report Type: 
  Country: None (occurrence: None)
  Receive Date: 20050721
  Receipt Date: 20050628
  Transmission Date: 20060218
  Serious: Yes (Hospitalization, Other)
  Sender: FDA-Public Use
  Company Number: PHEH2005US07252

PATIENT
  Age: 13 Year
  Sex: Male

DRUGS (2)
  1. TEGRETOL [Suspect]
     Indication: CONVULSION
     Dosage: 100 MG, QID
     Route: 048
     Dates: start: 19960101, end: 20050601
  2. TEGRETOL [Suspect]
     Dosage: TAPERING DOSE
     Route: 048
     Dates: start: 20050601

REACTIONS (11)
  - DYSKINESIA [None]
  - EYELID FUNCTION DISORDER [None]
  - EYELID PTOSIS [None]
  - HYPERTENSION [None]
  - HYPOTENSION [None]
  - LOSS OF CONSCIOUSNESS [None]
  - MIOSIS [None]
  - NYSTAGMUS [None]
  - PHOTOPHOBIA [None]
  - PUPIL FIXED [None]
  - URTICARIA [None]
